FAERS Safety Report 10201680 (Version 3)
Quarter: 2014Q2

REPORT INFORMATION
  Report Type: Spontaneous
  Country: FR (occurrence: FR)
  Receive Date: 20140528
  Receipt Date: 20140613
  Transmission Date: 20141212
  Serious: Yes (Hospitalization)
  Sender: FDA-Public Use
  Company Number: FR-PFIZER INC-2014143398

PATIENT
  Age: 93 Year
  Sex: Female

DRUGS (13)
  1. ALDACTONE [Suspect]
     Indication: HYPERTENSION
     Dosage: 50 MG, ONCE DAILY
     Route: 048
     Dates: start: 20140415, end: 20140511
  2. LASILIX [Suspect]
     Indication: HYPERTENSION
     Dosage: 80 MG, 1X/DAY
     Route: 048
  3. LOXEN [Concomitant]
     Dosage: UNK
  4. CARDENSIEL [Concomitant]
     Dosage: UNK
  5. PHYSIOTENS [Concomitant]
     Dosage: UNK
  6. LYSANXIA [Concomitant]
     Dosage: UNK
  7. NOCTAMIDE [Concomitant]
     Dosage: UNK
  8. DEBRIDAT [Concomitant]
     Dosage: UNK
  9. DIOSMIN [Concomitant]
  10. MOVICOL [Concomitant]
  11. PROCTOLOG [Concomitant]
     Dosage: UNK
  12. COLPOTROPHINE [Concomitant]
     Dosage: UNK
  13. ARCALION [Concomitant]
     Dosage: UNK

REACTIONS (3)
  - Hyponatraemia [Recovered/Resolved]
  - Acute pulmonary oedema [Unknown]
  - Electrocardiogram ST segment depression [Unknown]
